FAERS Safety Report 6790832-7 (Version None)
Quarter: 2010Q2

REPORT INFORMATION
  Report Type: 
  Country: None (occurrence: None)
  Receive Date: 20100624
  Receipt Date: 20100616
  Transmission Date: 20101027
  Serious: Yes (Hospitalization)
  Sender: FDA-Public Use
  Company Number: A0796471A

PATIENT
  Age: 46 Year
  Sex: Male

DRUGS (1)
  1. AVANDIA [Suspect]
     Indication: DIABETES MELLITUS
     Dosage: 4MG PER DAY
     Route: 065
     Dates: start: 20040303, end: 20070720

REACTIONS (5)
  - ACUTE MYOCARDIAL INFARCTION [None]
  - CARDIOVASCULAR DISORDER [None]
  - ISCHAEMIC CARDIOMYOPATHY [None]
  - LEFT VENTRICULAR HYPERTROPHY [None]
  - MYOCARDIAL INFARCTION [None]
